FAERS Safety Report 10298939 (Version 1)
Quarter: 2014Q3

REPORT INFORMATION
  Report Type: Spontaneous
  Country: TR (occurrence: TR)
  Receive Date: 20140711
  Receipt Date: 20140711
  Transmission Date: 20150326
  Serious: Yes (Death, Hospitalization)
  Sender: FDA-Public Use
  Company Number: TR-ASTRAZENECA-2014SE49983

PATIENT
  Sex: Male

DRUGS (1)
  1. BELOC ZOK [Suspect]
     Active Substance: METOPROLOL SUCCINATE
     Indication: CORONARY ARTERY DISEASE
     Route: 048

REACTIONS (1)
  - Hypoglycaemia [Fatal]
